FAERS Safety Report 7908653-8 (Version None)
Quarter: 2011Q4

REPORT INFORMATION
  Report Type: 
  Country: None (occurrence: None)
  Receive Date: 20111111
  Receipt Date: 20111108
  Transmission Date: 20120403
  Serious: Yes (Other)
  Sender: FDA-Public Use
  Company Number: PHHY2011MX098766

PATIENT
  Sex: Female

DRUGS (2)
  1. ZOLEDRONOC ACID [Suspect]
     Indication: OSTEOPOROSIS
     Dosage: 5 MG, UNK (PER YEAR)
     Route: 042
     Dates: start: 20110509
  2. NOVOVARTALON [Concomitant]
     Dosage: UNK UKN, QD
     Dates: start: 20111001

REACTIONS (2)
  - FALL [None]
  - WRIST FRACTURE [None]
